FAERS Safety Report 19956573 (Version 2)
Quarter: 2021Q4

REPORT INFORMATION
  Report Type: Spontaneous
  Country: US (occurrence: US)
  Receive Date: 20211014
  Receipt Date: 20211103
  Transmission Date: 20220303
  Serious: Yes (Hospitalization)
  Sender: FDA-Public Use
  Company Number: US-TEVA-2021-US-1963796

PATIENT
  Age: 44 Year
  Sex: Female

DRUGS (2)
  1. LAMOTRIGINE [Interacting]
     Active Substance: LAMOTRIGINE
     Indication: Bipolar disorder
     Route: 065
  2. VALPROIC ACID [Interacting]
     Active Substance: VALPROIC ACID
     Indication: Bipolar disorder
     Route: 065

REACTIONS (5)
  - Nystagmus [Recovered/Resolved]
  - Dysmetria [Recovered/Resolved]
  - Vertigo [Recovered/Resolved]
  - Toxicity to various agents [Unknown]
  - Drug interaction [Unknown]
